FAERS Safety Report 10037101 (Version 1)
Quarter: 2014Q1

REPORT INFORMATION
  Report Type: Spontaneous
  Country: US (occurrence: None)
  Receive Date: 20140324
  Receipt Date: 20140324
  Transmission Date: 20141002
  Serious: Yes (Other)
  Sender: FDA-Public Use
  Company Number: 14AE012

PATIENT
  Sex: Female

DRUGS (12)
  1. LOPERAMIDE HCL [Suspect]
     Indication: FAECES SOFT
     Dosage: 1 BY MOUTH/ONCE
     Route: 048
     Dates: start: 20140310
  2. LOPERAMIDE HCL [Suspect]
     Indication: PROPHYLAXIS
     Dosage: 1 BY MOUTH/ONCE
     Route: 048
     Dates: start: 20140310
  3. NORVASC [Concomitant]
  4. LISINOPRIL [Concomitant]
  5. METOPROLOL [Concomitant]
  6. METOPROLOL [Concomitant]
  7. ZETIA [Concomitant]
  8. METFORMIN [Concomitant]
  9. GLIPIZIDE [Concomitant]
  10. LIPITOR [Concomitant]
  11. ALLOPURINOL [Concomitant]
  12. BABY ASPIRIN [Concomitant]

REACTIONS (6)
  - Vomiting [None]
  - Diarrhoea [None]
  - Medication residue present [None]
  - Product solubility abnormal [None]
  - Vomiting [None]
  - Product quality issue [None]
